FAERS Safety Report 7243448-2 (Version None)
Quarter: 2010Q4

REPORT INFORMATION
  Report Type: 
  Country: None (occurrence: None)
  Receive Date: 20101130
  Receipt Date: 20091002
  Transmission Date: 20110411
  Serious: Yes (Hospitalization, Other)
  Sender: FDA-Public Use
  Company Number: 2009SP028568

PATIENT
  Age: 26 Year
  Sex: Female
  Weight: 64.8644 kg

DRUGS (1)
  1. NUVARING [Suspect]
     Indication: CONTRACEPTION
     Dosage: QM; VAG
     Route: 067
     Dates: start: 20060801, end: 20071001

REACTIONS (6)
  - DEEP VEIN THROMBOSIS [None]
  - DEPRESSION [None]
  - FATIGUE [None]
  - MENSTRUATION IRREGULAR [None]
  - PULMONARY EMBOLISM [None]
  - STRESS [None]
